FAERS Safety Report 5363188-4 (Version None)
Quarter: 2007Q2

REPORT INFORMATION
  Report Type: 
  Country: None (occurrence: None)
  Receive Date: 20070618
  Receipt Date: 20070618
  Transmission Date: 20071010
  Serious: No
  Sender: FDA-Public Use
  Company Number: None

PATIENT
  Age: 48 Year
  Sex: Male

DRUGS (6)
  1. GEMCITABINE HCL [Suspect]
     Indication: NEOPLASM MALIGNANT
     Dosage: 1000MG/M2 DAYS 1+8 OF 21
     Dates: start: 20070323, end: 20070504
  2. DOXORUBICIN HCL [Suspect]
     Indication: NEOPLASM MALIGNANT
     Dosage: 25 MG/M2 DAYS 1 + 8 OF 21
     Dates: start: 20070323, end: 20070504
  3. DIAZEPAM [Concomitant]
  4. RESTORIL [Concomitant]
  5. DARVOCET [Concomitant]
  6. HYZAAR [Concomitant]

REACTIONS (2)
  - FEBRILE NEUTROPENIA [None]
  - PNEUMONIA [None]
